FAERS Safety Report 6739043-1 (Version None)
Quarter: 2010Q2

REPORT INFORMATION
  Report Type: 
  Country: None (occurrence: None)
  Receive Date: 20100524
  Receipt Date: 20100524
  Transmission Date: 20101027
  Serious: Yes (Hospitalization)
  Sender: FDA-Public Use
  Company Number: None

PATIENT
  Age: 50 Year
  Sex: Male
  Weight: 39.0093 kg

DRUGS (2)
  1. SAMSCA [Suspect]
     Indication: HYPONATRAEMIA
     Dosage: 15MG X2 DOSES PO
     Route: 048
     Dates: start: 20100515, end: 20100515
  2. SAMSCA [Suspect]
     Indication: HYPONATRAEMIA
     Dosage: 15MG X2 DOSES PO
     Route: 048
     Dates: start: 20100518, end: 20100518

REACTIONS (1)
  - HYPONATRAEMIA [None]
